FAERS Safety Report 9688392 (Version 1)
Quarter: 2013Q4

REPORT INFORMATION
  Report Type: Spontaneous
  Country: US (occurrence: None)
  Receive Date: 20131112
  Receipt Date: 20131112
  Transmission Date: 20140711
  Serious: Yes (Life-Threatening, Hospitalization)
  Sender: FDA-Public Use
  Company Number: 2013US002791

PATIENT
  Age: 69 Year
  Sex: Female

DRUGS (2)
  1. ICLUSIG [Suspect]
     Indication: PRODUCT USED FOR UNKNOWN INDICATION
     Route: 048
  2. ALLOPURINOL [Concomitant]

REACTIONS (6)
  - Pulmonary embolism [None]
  - Chest pain [None]
  - Deep vein thrombosis [None]
  - Dyspnoea [None]
  - Cardiac failure congestive [None]
  - Pain in extremity [None]
